FAERS Safety Report 6887280-8 (Version None)
Quarter: 2010Q3

REPORT INFORMATION
  Report Type: 
  Country: None (occurrence: None)
  Receive Date: 20100728
  Receipt Date: 20100713
  Transmission Date: 20110219
  Serious: Yes (Hospitalization)
  Sender: FDA-Public Use
  Company Number: 2010000327

PATIENT
  Age: 73 Year
  Sex: Male
  Weight: 55.8 kg

DRUGS (3)
  1. ERLOTINIB HYDROCHLORIDE [Suspect]
     Indication: NON-SMALL CELL LUNG CANCER
     Dosage: ORAL
     Route: 048
     Dates: start: 20091029
  2. GEMCITABINE [Suspect]
     Indication: NON-SMALL CELL LUNG CANCER
     Dosage: (1250 MG/M2), INTRAVENOUS
     Route: 042
     Dates: start: 20091029
  3. CARBOPLATIN [Suspect]
     Indication: NON-SMALL CELL LUNG CANCER
     Dosage: (443 MG), INTRAVENOUS
     Route: 042
     Dates: start: 20091008

REACTIONS (2)
  - ANAEMIA [None]
  - PNEUMONIA [None]
